FAERS Safety Report 5133832-5 (Version None)
Quarter: 2006Q4

REPORT INFORMATION
  Report Type: 
  Country: None (occurrence: None)
  Receive Date: 20061018
  Receipt Date: 20061011
  Transmission Date: 20070319
  Serious: Yes (Other)
  Sender: FDA-Public Use
  Company Number: 008844

PATIENT
  Sex: Female

DRUGS (5)
  1. MEDROXYPROGESTERONE ACETATE [Suspect]
     Dosage: ORAL
     Route: 048
  2. PREMARIN [Suspect]
     Dosage: ORAL
     Route: 048
  3. PROVERA [Suspect]
     Dosage: ORAL
     Route: 048
  4. OGEN [Suspect]
     Dosage: ORAL
     Route: 048
  5. ESTROPIPATE [Suspect]
     Dosage: ORAL
     Route: 048

REACTIONS (1)
  - BREAST CANCER FEMALE [None]
